FAERS Safety Report 25719953 (Version 1)
Quarter: 2025Q3

REPORT INFORMATION
  Report Type: Spontaneous
  Country: US (occurrence: US)
  Receive Date: 20250825
  Receipt Date: 20250825
  Transmission Date: 20251020
  Serious: Yes (Life-Threatening, Hospitalization, Other)
  Sender: JUBILANT
  Company Number: None

PATIENT

DRUGS (2)
  1. INDOMETHACIN [Suspect]
     Active Substance: INDOMETHACIN
     Indication: Ebstein^s anomaly
     Dosage: 100 MG, 2 TIMES PER DAY (SIXTH DOSES)
     Route: 064
  2. INDOMETHACIN [Suspect]
     Active Substance: INDOMETHACIN
     Dosage: 100 MG, ONCE PER DAY
     Route: 064

REACTIONS (5)
  - Ductus arteriosus premature closure [Unknown]
  - Pulmonary hypoplasia [Unknown]
  - Congenital arterial malformation [Unknown]
  - Bradycardia [Unknown]
  - Hypoxia [Unknown]
